FAERS Safety Report 4283736-5 (Version None)
Quarter: 2004Q1

REPORT INFORMATION
  Report Type: 
  Country: None (occurrence: None)
  Receive Date: 20040115
  Receipt Date: 20030819
  Transmission Date: 20041129
  Serious: Yes (Death, Hospitalization)
  Sender: FDA-Public Use
  Company Number: NSADSS2003005808

PATIENT
  Age: 48 Year
  Sex: Female
  Weight: 108.4097 kg

DRUGS (3)
  1. DOXIL [Suspect]
     Indication: OVARIAN CANCER
     Dosage: 30 MG/M2, 1 IN 4 WEEK, INTRAVENOUS DRIP
     Route: 041
     Dates: start: 20020201
  2. XANAX [Concomitant]
  3. PREVACID [Concomitant]

REACTIONS (7)
  - FAECAL INCONTINENCE [None]
  - MALIGNANT NEOPLASM PROGRESSION [None]
  - MOUTH ULCERATION [None]
  - MUSCULAR WEAKNESS [None]
  - PALMAR-PLANTAR ERYTHRODYSAESTHESIA SYNDROME [None]
  - PARAESTHESIA [None]
  - URINARY INCONTINENCE [None]
